FAERS Safety Report 19697086 (Version 1)
Quarter: 2021Q3

REPORT INFORMATION
  Report Type: Spontaneous
  Country: US (occurrence: US)
  Receive Date: 20210813
  Receipt Date: 20210813
  Transmission Date: 20211014
  Serious: No
  Sender: FDA-Public Use
  Company Number: None

PATIENT
  Age: 43 Year
  Sex: Female

DRUGS (2)
  1. BUPROPION HYDROCHLORIDE XL [Suspect]
     Active Substance: BUPROPION HYDROCHLORIDE
     Dosage: ?          OTHER STRENGTH:300;?
  2. BUPROPION. [Suspect]
     Active Substance: BUPROPION

REACTIONS (3)
  - Anxiety [None]
  - Therapeutic product effect decreased [None]
  - Product substitution issue [None]
